FAERS Safety Report 8824819 (Version 2)
Quarter: 2012Q4

REPORT INFORMATION
  Report Type: 
  Country: US (occurrence: US)
  Receive Date: 20121004
  Receipt Date: 20121029
  Transmission Date: 20130627
  Serious: Yes (Hospitalization)
  Sender: FDA-Public Use
  Company Number: US-B.I. PHARMACEUTICALS,INC./RIDGEFIELD-2012-BP-23654BP

PATIENT
  Age: 68 None
  Sex: Male
  Weight: 111 kg

DRUGS (12)
  1. SPIRIVA [Suspect]
     Indication: CHRONIC OBSTRUCTIVE PULMONARY DISEASE
     Dosage: 18 mcg
     Route: 055
     Dates: start: 201203
  2. PROAIR [Concomitant]
  3. COUMADIN [Concomitant]
  4. FLONASE [Concomitant]
  5. OMEPRAZOLE [Concomitant]
  6. CRESTOR [Concomitant]
  7. CYMBALTA [Concomitant]
  8. LISINOPRIL [Concomitant]
  9. COREG [Concomitant]
  10. FLOVENT [Concomitant]
  11. VENLAFAXINE [Concomitant]
  12. VICODIN [Concomitant]

REACTIONS (5)
  - Thrombosis [Recovered/Resolved]
  - Pneumonia [Recovered/Resolved]
  - Biopsy brain [Recovered/Resolved]
  - Dyspnoea [Not Recovered/Not Resolved]
  - Atelectasis [Unknown]
